FAERS Safety Report 25330455 (Version 1)
Quarter: 2025Q2

REPORT INFORMATION
  Report Type: Spontaneous
  Country: CN (occurrence: CN)
  Receive Date: 20250519
  Receipt Date: 20250519
  Transmission Date: 20250716
  Serious: Yes (Hospitalization, Other)
  Sender: BAXTER
  Company Number: None

PATIENT
  Age: 43 Year
  Sex: Male
  Weight: 70 kg

DRUGS (17)
  1. CYCLOPHOSPHAMIDE [Suspect]
     Active Substance: CYCLOPHOSPHAMIDE
     Indication: Acute lymphocytic leukaemia
     Dosage: 0.5 G, BID
     Route: 041
     Dates: start: 20250416, end: 20250418
  2. SODIUM CHLORIDE [Suspect]
     Active Substance: SODIUM CHLORIDE
     Dosage: 100 ML, BID, (0.9% INJECTION) IVGTT D1-D3, + CYCLOPHOSPHAMIDE FOR INJECTION 0.5 G
     Route: 041
     Dates: start: 20250416, end: 20250418
  3. SODIUM CHLORIDE [Suspect]
     Active Substance: SODIUM CHLORIDE
     Dosage: 40 ML, QD, (0.9% INJECTION) D4 + VINDESINE SULFATE FOR INJECTION 5 MG
     Route: 042
     Dates: start: 20250419, end: 20250419
  4. SODIUM CHLORIDE [Suspect]
     Active Substance: SODIUM CHLORIDE
     Dosage: 40 ML, QD, (0.9% INJECTION) D11 + VINDESINE SULFATE FOR INJECTION 5 MG
     Route: 042
     Dates: start: 20250426, end: 20250426
  5. DEXTROSE [Suspect]
     Active Substance: DEXTROSE MONOHYDRATE
     Dosage: 40 ML, QD, (5% INJECTION) D4 + EPIRUBICIN HYDROCHLORIDE FOR INJECTION 60 MG
     Route: 042
     Dates: start: 20250419, end: 20250419
  6. PEGASPARGASE [Suspect]
     Active Substance: PEGASPARGASE
     Indication: Acute lymphocytic leukaemia
     Dosage: 3750 IU, QD
     Route: 030
     Dates: start: 20250416, end: 20250416
  7. EPIRUBICIN [Suspect]
     Active Substance: EPIRUBICIN
     Indication: Acute lymphocytic leukaemia
     Dosage: 60 MG, QD
     Route: 042
     Dates: start: 20250419, end: 20250419
  8. VINDESINE SULFATE [Suspect]
     Active Substance: VINDESINE SULFATE
     Indication: Acute lymphocytic leukaemia
     Dosage: 5 MG, QD
     Route: 042
     Dates: start: 20250419, end: 20250419
  9. VINDESINE SULFATE [Suspect]
     Active Substance: VINDESINE SULFATE
     Dosage: 5 MG, QD
     Route: 042
     Dates: start: 20250426, end: 20250426
  10. CYTARABINE [Suspect]
     Active Substance: CYTARABINE
     Indication: Acute lymphocytic leukaemia
     Dosage: 0.04 G, QD
     Route: 037
     Dates: start: 20250416, end: 20250416
  11. CYTARABINE [Suspect]
     Active Substance: CYTARABINE
     Indication: Central nervous system leukaemia
  12. CYTARABINE [Suspect]
     Active Substance: CYTARABINE
     Indication: Prophylaxis
  13. METHOTREXATE [Suspect]
     Active Substance: METHOTREXATE
     Indication: Acute lymphocytic leukaemia
     Dosage: 0.01 G, QD
     Route: 037
     Dates: start: 20250416, end: 20250416
  14. METHOTREXATE [Suspect]
     Active Substance: METHOTREXATE
     Indication: Central nervous system leukaemia
  15. METHOTREXATE [Suspect]
     Active Substance: METHOTREXATE
     Indication: Prophylaxis
  16. DEXAMETHASONE [Concomitant]
     Active Substance: DEXAMETHASONE
     Indication: Central nervous system leukaemia
     Dosage: 6 MG, QD
     Route: 037
     Dates: start: 20250416, end: 20250416
  17. DEXAMETHASONE [Concomitant]
     Active Substance: DEXAMETHASONE
     Indication: Prophylaxis

REACTIONS (2)
  - Blood fibrinogen decreased [Recovering/Resolving]
  - Myelosuppression [Recovering/Resolving]

NARRATIVE: CASE EVENT DATE: 20250426
